FAERS Safety Report 12119653 (Version 2)
Quarter: 2016Q2

REPORT INFORMATION
  Report Type: Spontaneous
  Country: US (occurrence: US)
  Receive Date: 20160226
  Receipt Date: 20160401
  Transmission Date: 20160815
  Serious: Yes (Hospitalization)
  Sender: FDA-Public Use
  Company Number: US-009507513-1602USA011253

PATIENT
  Age: 78 Year
  Sex: Male

DRUGS (4)
  1. LENALIDOMIDE [Suspect]
     Active Substance: LENALIDOMIDE
     Indication: PRIMARY AMYLOIDOSIS
  2. DECADRON [Suspect]
     Active Substance: DEXAMETHASONE
     Indication: PRIMARY AMYLOIDOSIS
  3. LENALIDOMIDE [Suspect]
     Active Substance: LENALIDOMIDE
     Indication: PLASMACYTOMA
  4. DECADRON [Suspect]
     Active Substance: DEXAMETHASONE
     Indication: PLASMACYTOMA

REACTIONS (2)
  - Anaemia [Unknown]
  - Melaena [Unknown]
